FAERS Safety Report 5112438-8 (Version None)
Quarter: 2006Q3

REPORT INFORMATION
  Report Type: 
  Country: None (occurrence: None)
  Receive Date: 20060922
  Receipt Date: 20060914
  Transmission Date: 20061208
  Serious: Yes (Other)
  Sender: FDA-Public Use
  Company Number: 2006UW18008

PATIENT
  Age: 59 Year
  Sex: Female

DRUGS (3)
  1. TENORMIN [Suspect]
     Route: 048
  2. HYDRAZINE [Suspect]
  3. LASIX [Suspect]

REACTIONS (1)
  - TRANSPLANT [None]
